FAERS Safety Report 19729368 (Version 2)
Quarter: 2021Q3

REPORT INFORMATION
  Report Type: Spontaneous
  Country: US (occurrence: US)
  Receive Date: 20210820
  Receipt Date: 20210825
  Transmission Date: 20211014
  Serious: Yes (Other)
  Sender: FDA-Public Use
  Company Number: US-G1-000318

PATIENT
  Age: 61 Year
  Sex: Male
  Weight: 101.79 kg

DRUGS (4)
  1. 1325315 (GLOBALC3SEP20): CARBOPLATIN [Concomitant]
     Route: 042
     Dates: start: 20210720, end: 20210720
  2. 3192908 (GLOBALC3SEP20): TECENTRIQ [Concomitant]
     Route: 042
     Dates: start: 20210720, end: 20210720
  3. COSELA [Suspect]
     Active Substance: TRILACICLIB DIHYDROCHLORIDE
     Indication: MYELOSUPPRESSION
     Dosage: 494.4 MG, ONE TIME GIVEN
     Route: 042
     Dates: start: 20210720, end: 20210720
  4. 1326091 (GLOBALC3SEP20): ETOPOSIDE [Concomitant]
     Route: 042
     Dates: start: 20210720, end: 20210722

REACTIONS (1)
  - Abnormal weight gain [Unknown]

NARRATIVE: CASE EVENT DATE: 20210721
